FAERS Safety Report 16361903 (Version 2)
Quarter: 2019Q3

REPORT INFORMATION
  Report Type: Report from Study
  Country: US (occurrence: US)
  Receive Date: 20190528
  Receipt Date: 20190925
  Transmission Date: 20191004
  Serious: No
  Sender: FDA-Public Use
  Company Number: US-INCYTE CORPORATION-2019IN003802

PATIENT

DRUGS (6)
  1. HYDROXYUREA. [Concomitant]
     Active Substance: HYDROXYUREA
     Indication: PRODUCT USED FOR UNKNOWN INDICATION
     Route: 065
  2. JAKAFI [Suspect]
     Active Substance: RUXOLITINIB
     Dosage: 20MG QD (MWF) AND 20MG BID (SUTUTHSA)
     Route: 048
  3. TRAMADOL. [Concomitant]
     Active Substance: TRAMADOL
     Indication: PRODUCT USED FOR UNKNOWN INDICATION
     Dosage: AS NEEDED
     Route: 065
  4. JAKAFI [Suspect]
     Active Substance: RUXOLITINIB
     Indication: MYELOFIBROSIS
     Dosage: 20 MILLIGRAM, BID
     Route: 048
     Dates: start: 20190325, end: 20190410
  5. JAKAFI [Suspect]
     Active Substance: RUXOLITINIB
     Dosage: 20 MILLIGRAM, BID
     Route: 048
     Dates: start: 20190412
  6. IBUPROFEN. [Concomitant]
     Active Substance: IBUPROFEN
     Indication: PRODUCT USED FOR UNKNOWN INDICATION
     Dosage: 800 MILLIGRAM
     Route: 048

REACTIONS (15)
  - Platelet count increased [Unknown]
  - Pain in extremity [Recovering/Resolving]
  - Muscle spasms [Recovering/Resolving]
  - Haemoptysis [Unknown]
  - Platelet count decreased [Unknown]
  - Ageusia [Unknown]
  - Stress [Unknown]
  - Weight increased [Unknown]
  - Flushing [Recovered/Resolved]
  - Epistaxis [Recovering/Resolving]
  - Headache [Recovered/Resolved]
  - Impaired healing [Unknown]
  - Depression [Unknown]
  - Asthenia [Unknown]
  - Blood cholesterol increased [Unknown]

NARRATIVE: CASE EVENT DATE: 20190410
